FAERS Safety Report 8253951 (Version 6)
Quarter: 2013Q3

REPORT INFORMATION
  Report Type: Report from Study
  Country: FI (occurrence: FI)
  Receive Date: 20111118
  Receipt Date: 20130704
  Transmission Date: 20140515
  Serious: Yes (Hospitalization, Other)
  Sender: FDA-Public Use
  Company Number: FI-BIOGENIDEC-2011BI042541

PATIENT
  Age: 47 Year
  Sex: Female

DRUGS (8)
  1. NATALIZUMAB [Suspect]
     Indication: MULTIPLE SCLEROSIS
     Route: 042
     Dates: start: 20060320, end: 20111003
  2. SERTRALIN [Concomitant]
  3. KLOTRIPTYL MITE [Concomitant]
     Route: 048
  4. OPAMOX [Concomitant]
  5. CERAZETTE [Concomitant]
  6. SIRDALUD [Concomitant]
  7. IMOVANE [Concomitant]
  8. SPASMO-LYT PLUS [Concomitant]

REACTIONS (1)
  - Progressive multifocal leukoencephalopathy [Recovered/Resolved with Sequelae]
